FAERS Safety Report 7000899-9 (Version None)
Quarter: 2010Q3

REPORT INFORMATION
  Report Type: 
  Country: None (occurrence: None)
  Receive Date: 20100920
  Receipt Date: 20100910
  Transmission Date: 20110219
  Serious: Yes (Other)
  Sender: FDA-Public Use
  Company Number: PHHY2010US60167

PATIENT
  Sex: Female

DRUGS (3)
  1. FANAPT [Suspect]
     Dosage: 6 MG, TWICE DAILY (ONE IN THE MORNING AND ONE AT NIGHT)
     Route: 048
  2. FANAPT [Suspect]
     Dosage: 8 MG, UNK
     Route: 048
     Dates: end: 20100909
  3. SYNTHROID [Concomitant]
     Dosage: UNK

REACTIONS (14)
  - ABNORMAL BEHAVIOUR [None]
  - CONFUSIONAL STATE [None]
  - DISTURBANCE IN ATTENTION [None]
  - DRY MOUTH [None]
  - DYSKINESIA [None]
  - DYSPNOEA [None]
  - GAIT DISTURBANCE [None]
  - MOOD ALTERED [None]
  - NASAL CONGESTION [None]
  - POLLAKIURIA [None]
  - REPETITIVE SPEECH [None]
  - THINKING ABNORMAL [None]
  - URINARY INCONTINENCE [None]
  - WEIGHT INCREASED [None]
